FAERS Safety Report 18095029 (Version 3)
Quarter: 2020Q3

REPORT INFORMATION
  Report Type: Report from Study
  Country: US (occurrence: US)
  Receive Date: 20200730
  Receipt Date: 20200825
  Transmission Date: 20201103
  Serious: Yes (Death)
  Sender: FDA-Public Use
  Company Number: US-JNJFOC-20200734808

PATIENT
  Age: 52 Year
  Sex: Male
  Weight: 102.15 kg

DRUGS (3)
  1. SPRAVATO [Suspect]
     Active Substance: ESKETAMINE
     Dosage: 84 MG, 27 TOTAL DOSES
     Dates: start: 20190926, end: 20200507
  2. SPRAVATO [Suspect]
     Active Substance: ESKETAMINE
     Dates: start: 20190919
  3. SPRAVATO [Suspect]
     Active Substance: ESKETAMINE
     Indication: DEPRESSION
     Dosage: 56 MG, 1 TOTAL DOSE
     Dates: start: 20190924, end: 20190924

REACTIONS (1)
  - Completed suicide [Fatal]

NARRATIVE: CASE EVENT DATE: 20200710
